FAERS Safety Report 5739227-5 (Version None)
Quarter: 2008Q2

REPORT INFORMATION
  Report Type: 
  Country: None (occurrence: None)
  Receive Date: 20080515
  Receipt Date: 20080509
  Transmission Date: 20081010
  Serious: Yes (Hospitalization)
  Sender: FDA-Public Use
  Company Number: IT-BAYER-200818199GPV

PATIENT
  Age: 88 Year
  Sex: Female

DRUGS (9)
  1. ACETYLSALICYLIC ACID SRT [Suspect]
     Indication: PROPHYLAXIS
     Route: 048
     Dates: start: 20080301, end: 20080411
  2. SEROPRAM (CITALOPRAM) [Suspect]
     Indication: AGITATION
     Dosage: TOTAL DAILY DOSE: 5 GTT  UNIT DOSE: 5 GTT
     Route: 048
     Dates: start: 20080201, end: 20080411
  3. DELTA-CORTEF [Suspect]
     Indication: POLYMYALGIA RHEUMATICA
     Dosage: TOTAL DAILY DOSE: 10 MG  UNIT DOSE: 5 MG
     Route: 048
     Dates: start: 20080401, end: 20080411
  4. LASIX [Concomitant]
     Indication: CARDIAC FAILURE
     Dosage: TOTAL DAILY DOSE: 250 MG  UNIT DOSE: 250 MG
     Route: 048
     Dates: start: 20080201, end: 20080411
  5. CONGESCOR (BISOPROLOL) [Concomitant]
     Indication: CARDIAC FAILURE
     Dosage: TOTAL DAILY DOSE: 2.5 MG  UNIT DOSE: 2.5 MG
     Route: 048
     Dates: start: 20080201, end: 20080411
  6. ALDACTONE [Concomitant]
     Indication: CARDIAC FAILURE
     Dosage: TOTAL DAILY DOSE: 50 MG  UNIT DOSE: 50 MG
     Route: 048
     Dates: start: 20080201, end: 20080411
  7. ALLOPURINOL [Concomitant]
     Indication: HYPERURICAEMIA
     Route: 048
     Dates: start: 20080201, end: 20080411
  8. NEXIUM [Concomitant]
     Indication: DRUG USE FOR UNKNOWN INDICATION
     Route: 042
  9. SPIRIVA [Concomitant]
     Indication: DRUG USE FOR UNKNOWN INDICATION
     Route: 055

REACTIONS (3)
  - ANAEMIA [None]
  - DIVERTICULUM INTESTINAL HAEMORRHAGIC [None]
  - RECTAL HAEMORRHAGE [None]
